FAERS Safety Report 6115477-3 (Version None)
Quarter: 2009Q1

REPORT INFORMATION
  Report Type: 
  Country: None (occurrence: None)
  Receive Date: 20090313
  Receipt Date: 20090304
  Transmission Date: 20090719
  Serious: Yes (Hospitalization, Other)
  Sender: FDA-Public Use
  Company Number: FR-JNJFOC-20090300768

PATIENT
  Sex: Female

DRUGS (10)
  1. RISPERDAL [Suspect]
     Route: 048
  2. RISPERDAL [Suspect]
     Route: 048
  3. RISPERDAL [Suspect]
     Indication: ABNORMAL BEHAVIOUR
     Route: 048
  4. MODOPAR [Suspect]
     Indication: PARKINSON'S DISEASE
     Route: 048
  5. PROZAC [Suspect]
     Indication: DRUG USE FOR UNKNOWN INDICATION
     Route: 048
  6. TRIVASTAL [Suspect]
     Indication: PARKINSON'S DISEASE
  7. NEXIUM [Concomitant]
     Route: 065
  8. MEPRONIZINE [Concomitant]
     Indication: INSOMNIA
     Route: 065
  9. DIANTALVIC [Concomitant]
     Indication: PAIN
     Route: 065
  10. PARACETAMOL [Concomitant]
     Route: 065

REACTIONS (6)
  - AGITATION [None]
  - ANAEMIA [None]
  - BLOOD CREATININE INCREASED [None]
  - CEREBRAL ATROPHY [None]
  - DISTURBANCE IN ATTENTION [None]
  - PSYCHOMOTOR RETARDATION [None]
